FAERS Safety Report 6793132-4 (Version None)
Quarter: 2010Q2

REPORT INFORMATION
  Report Type: 
  Country: None (occurrence: None)
  Receive Date: 20100624
  Receipt Date: 20090615
  Transmission Date: 20101027
  Serious: Yes (Other)
  Sender: FDA-Public Use
  Company Number: US-MYLANLABS-2009S1009558

PATIENT
  Age: 60 Year
  Sex: Female
  Weight: 65.77 kg

DRUGS (3)
  1. CLOZAPINE [Suspect]
     Route: 048
     Dates: end: 20090528
  2. AMBIEN [Concomitant]
  3. OXAZEPAM [Concomitant]

REACTIONS (1)
  - GRANULOCYTOPENIA [None]
